FAERS Safety Report 6371411-2 (Version None)
Quarter: 2009Q3

REPORT INFORMATION
  Report Type: 
  Country: None (occurrence: None)
  Receive Date: 20090923
  Receipt Date: 20070924
  Transmission Date: 20100115
  Serious: No
  Sender: FDA-Public Use
  Company Number: US-ASTRAZENECA-2007UW14369

PATIENT
  Age: 387 Month
  Sex: Male
  Weight: 86.2 kg

DRUGS (10)
  1. SEROQUEL [Suspect]
     Indication: DEPRESSION
     Dosage: 25-30 MG
     Route: 048
     Dates: start: 20040801, end: 20061201
  2. SEROQUEL [Suspect]
     Indication: SLEEP DISORDER
     Dosage: 25-30 MG
     Route: 048
     Dates: start: 20040801, end: 20061201
  3. SEROQUEL [Suspect]
     Indication: ANXIETY
     Dosage: 25-30 MG
     Route: 048
     Dates: start: 20040801, end: 20061201
  4. SEROQUEL [Suspect]
     Indication: FATIGUE
     Dosage: 25-30 MG
     Route: 048
     Dates: start: 20040801, end: 20061201
  5. SEROQUEL [Suspect]
     Dosage: 25-50 MG
     Route: 048
     Dates: start: 20041004, end: 20041202
  6. SEROQUEL [Suspect]
     Dosage: 25-50 MG
     Route: 048
     Dates: start: 20041004, end: 20041202
  7. SEROQUEL [Suspect]
     Dosage: 25-50 MG
     Route: 048
     Dates: start: 20041004, end: 20041202
  8. SEROQUEL [Suspect]
     Dosage: 25-50 MG
     Route: 048
     Dates: start: 20041004, end: 20041202
  9. RISPERDAL [Concomitant]
     Dosage: 25-50 MG
     Dates: start: 20040301, end: 20041201
  10. ZYPREXA [Concomitant]
     Dates: start: 20040301, end: 20041201

REACTIONS (4)
  - DIABETES MELLITUS [None]
  - SLEEP DISORDER [None]
  - TYPE 2 DIABETES MELLITUS [None]
  - WEIGHT INCREASED [None]
